FAERS Safety Report 21376664 (Version 1)
Quarter: 2022Q3

REPORT INFORMATION
  Report Type: Spontaneous
  Country: US (occurrence: None)
  Receive Date: 20220926
  Receipt Date: 20220926
  Transmission Date: 20221026
  Serious: No
  Sender: FDA-Public Use
  Company Number: 2022A326079

PATIENT
  Age: 872 Month
  Sex: Male
  Weight: 149.2 kg

DRUGS (1)
  1. BYDUREON BCISE [Suspect]
     Active Substance: EXENATIDE
     Indication: Diabetes mellitus
     Route: 058

REACTIONS (4)
  - Injury associated with device [Unknown]
  - Injection site haemorrhage [Recovered/Resolved]
  - Intentional device misuse [Unknown]
  - Device leakage [Unknown]

NARRATIVE: CASE EVENT DATE: 20220901
